FAERS Safety Report 6162579-1 (Version None)
Quarter: 2009Q2

REPORT INFORMATION
  Report Type: 
  Country: None (occurrence: None)
  Receive Date: 20090421
  Receipt Date: 20080319
  Transmission Date: 20091009
  Serious: No
  Sender: FDA-Public Use
  Company Number: US-ASTRAZENECA-2004UW25902

PATIENT
  Age: 54 Year
  Sex: Male
  Weight: 112 kg

DRUGS (13)
  1. CRESTOR [Suspect]
     Indication: BLOOD CHOLESTEROL INCREASED
     Route: 048
     Dates: start: 20031201, end: 20040101
  2. CRESTOR [Suspect]
     Route: 048
     Dates: start: 20040101
  3. CRESTOR [Suspect]
     Dosage: 1/2 OF 20 MG TABLET
     Route: 048
     Dates: start: 20040101
  4. CRESTOR [Suspect]
     Route: 048
     Dates: start: 20060101
  5. CRESTOR [Suspect]
     Route: 048
     Dates: start: 20060101
  6. TOPROL-XL [Concomitant]
     Route: 048
  7. NIACIN [Concomitant]
  8. FISH OIL [Concomitant]
  9. DIOVAN [Concomitant]
  10. PLAVIX [Concomitant]
  11. ZETIA [Concomitant]
  12. WELCHOL [Concomitant]
  13. PROTONIX [Concomitant]

REACTIONS (8)
  - ARTHROPATHY [None]
  - BACK PAIN [None]
  - HEART RATE INCREASED [None]
  - HEART RATE IRREGULAR [None]
  - HYPOKINESIA [None]
  - MUSCLE SPASMS [None]
  - MUSCULOSKELETAL STIFFNESS [None]
  - PARAESTHESIA [None]
